FAERS Safety Report 10150072 (Version 1)
Quarter: 2014Q2

REPORT INFORMATION
  Report Type: Spontaneous
  Country: GB (occurrence: GB)
  Receive Date: 20140502
  Receipt Date: 20140502
  Transmission Date: 20141212
  Serious: Yes (Other)
  Sender: FDA-Public Use
  Company Number: GB-WATSON-2014-08672

PATIENT
  Sex: Female
  Weight: 57 kg

DRUGS (3)
  1. RAMIPRIL (UNKNOWN) [Suspect]
     Indication: HYPERTENSION
     Dosage: 2.5MG, UNK. 2.5 MG THEN REDUCED TO 1.25 MG
     Route: 048
     Dates: start: 201307, end: 20140311
  2. RAMIPRIL (UNKNOWN) [Suspect]
     Dosage: 1.25MG, UNK. 2.5 MG (TILL 11 MARCH 2014) THEN REDUCED TO 1.25 MG
     Route: 048
     Dates: start: 20140311, end: 20140402
  3. SIMVASTATIN [Concomitant]
     Indication: BLOOD CHOLESTEROL INCREASED
     Dosage: 10 MG, UNK; FOR 10 YEARS
     Route: 065

REACTIONS (5)
  - Laryngitis [Not Recovered/Not Resolved]
  - Cough [Recovering/Resolving]
  - Pharyngeal erythema [Not Recovered/Not Resolved]
  - Oropharyngeal pain [Not Recovered/Not Resolved]
  - Condition aggravated [Unknown]
